FAERS Safety Report 14845549 (Version 2)
Quarter: 2018Q2

REPORT INFORMATION
  Report Type: Spontaneous
  Country: US (occurrence: US)
  Receive Date: 20180504
  Receipt Date: 20180516
  Transmission Date: 20180711
  Serious: No
  Sender: FDA-Public Use
  Company Number: US-PFIZER INC-2018180925

PATIENT
  Age: 62 Year
  Sex: Male
  Weight: 72.56 kg

DRUGS (1)
  1. VIAGRA [Suspect]
     Active Substance: SILDENAFIL CITRATE
     Dosage: 100 MG (I USUALLY ONLY HAD TO TAKE ONLY A HALF NOW I WAS TAKING A FULL ONE FOR IT TO WORK

REACTIONS (1)
  - Drug ineffective [Unknown]
